FAERS Safety Report 11175523 (Version 9)
Quarter: 2023Q4

REPORT INFORMATION
  Report Type: Report from Study
  Country: CZ (occurrence: CZ)
  Receive Date: 20150609
  Receipt Date: 20231229
  Transmission Date: 20240110
  Serious: Yes (Hospitalization, Disabling)
  Sender: FDA-Public Use
  Company Number: CZ-ABBVIE-15P-217-1399419-00

PATIENT
  Age: 17 Year
  Sex: Female
  Weight: 69 kg

DRUGS (11)
  1. HUMIRA [Suspect]
     Active Substance: ADALIMUMAB
     Indication: Crohn^s disease
     Route: 058
     Dates: start: 20131009
  2. HUMIRA [Suspect]
     Active Substance: ADALIMUMAB
     Route: 058
     Dates: start: 20141016, end: 20150201
  3. HUMIRA [Suspect]
     Active Substance: ADALIMUMAB
     Route: 058
     Dates: start: 20150215, end: 20150508
  4. HUMIRA [Suspect]
     Active Substance: ADALIMUMAB
     Route: 058
     Dates: start: 20150515, end: 20150722
  5. HUMIRA [Suspect]
     Active Substance: ADALIMUMAB
     Route: 058
     Dates: start: 20150731, end: 20170303
  6. HUMIRA [Suspect]
     Active Substance: ADALIMUMAB
     Route: 058
     Dates: start: 20131011, end: 20141015
  7. AZATHIOPRINE [Suspect]
     Active Substance: AZATHIOPRINE
     Indication: Crohn^s disease
     Route: 048
     Dates: start: 20121210, end: 20150505
  8. AZATHIOPRINE [Suspect]
     Active Substance: AZATHIOPRINE
     Indication: Crohn^s disease
     Route: 048
     Dates: start: 20160321, end: 20170405
  9. AZATHIOPRINE [Suspect]
     Active Substance: AZATHIOPRINE
     Indication: Crohn^s disease
     Route: 048
     Dates: start: 20170406, end: 20190521
  10. METRONIDAZOLE [Concomitant]
     Active Substance: METRONIDAZOLE
     Indication: Abdominal operation
     Route: 041
     Dates: start: 20150121, end: 20150123
  11. METHOTREXATE [Concomitant]
     Active Substance: METHOTREXATE
     Indication: Crohn^s disease
     Route: 065
     Dates: start: 20121210

REACTIONS (4)
  - Crohn^s disease [Recovered/Resolved]
  - Iron deficiency anaemia [Not Recovered/Not Resolved]
  - Anaemia of chronic disease [Not Recovered/Not Resolved]
  - Cystitis [Recovered/Resolved]

NARRATIVE: CASE EVENT DATE: 20150421
